FAERS Safety Report 7644822-2 (Version None)
Quarter: 2011Q3

REPORT INFORMATION
  Report Type: 
  Country: None (occurrence: None)
  Receive Date: 20110729
  Receipt Date: 20110718
  Transmission Date: 20111222
  Serious: Yes (Other)
  Sender: FDA-Public Use
  Company Number: US-JNJFOC-20110707637

PATIENT
  Sex: Female
  Weight: 68.04 kg

DRUGS (6)
  1. KENALOG [Concomitant]
     Indication: PREMEDICATION
     Route: 030
  2. REMICADE [Suspect]
     Indication: CROHN'S DISEASE
     Route: 042
     Dates: start: 20110630
  3. REMICADE [Suspect]
     Route: 042
     Dates: start: 20050101
  4. ZYRTEC [Concomitant]
     Indication: CROHN'S DISEASE
     Route: 048
  5. SINGULAIR [Concomitant]
     Indication: DYSPNOEA
     Route: 045
  6. IMITREX [Concomitant]
     Indication: MIGRAINE
     Route: 048

REACTIONS (11)
  - CHEST DISCOMFORT [None]
  - COUGH [None]
  - PAIN [None]
  - NERVOUSNESS [None]
  - FEELING JITTERY [None]
  - RHEUMATOID ARTHRITIS [None]
  - MENOPAUSE [None]
  - INFUSION RELATED REACTION [None]
  - THROAT TIGHTNESS [None]
  - DISCOMFORT [None]
  - RESPIRATORY DISORDER [None]
